FAERS Safety Report 5453615-6 (Version None)
Quarter: 2007Q3

REPORT INFORMATION
  Report Type: 
  Country: None (occurrence: None)
  Receive Date: 20070917
  Receipt Date: 20070910
  Transmission Date: 20080115
  Serious: Yes (Hospitalization)
  Sender: FDA-Public Use
  Company Number: PHBS2007NL14847

PATIENT
  Sex: Male
  Weight: 87 kg

DRUGS (6)
  1. DIOVAN [Suspect]
     Indication: HYPERTENSION
     Dosage: 160 MG, QD
     Route: 048
     Dates: start: 20050715, end: 20070829
  2. ISOSORBIDE MONONITRATE [Suspect]
     Dosage: 50 MG, QD
  3. ALLERGEN EXTRACTS [Concomitant]
     Dosage: 20 ML, UNK
  4. CARBASALATE CALCIUM [Concomitant]
     Dosage: 100 MG, QD
  5. OMEPRAZOLE [Concomitant]
     Dosage: 20 MG, QD
  6. METOPROLOL SUCCINATE [Concomitant]
     Dosage: 50 MG, QD

REACTIONS (2)
  - BLOOD PRESSURE INCREASED [None]
  - MUSCLE SPASMS [None]
